FAERS Safety Report 24671563 (Version 2)
Quarter: 2024Q4

REPORT INFORMATION
  Report Type: Spontaneous
  Country: ES (occurrence: ES)
  Receive Date: 20241127
  Receipt Date: 20241218
  Transmission Date: 20250115
  Serious: Yes (Hospitalization, Other)
  Sender: ELI LILLY AND COMPANY
  Company Number: ES-ELI_LILLY_AND_COMPANY-ES202411011662

PATIENT
  Age: 65 Year
  Sex: Female

DRUGS (2)
  1. ABEMACICLIB [Suspect]
     Active Substance: ABEMACICLIB
     Indication: Product used for unknown indication
     Dosage: 150 MG, UNKNOWN
     Route: 048
     Dates: start: 2024, end: 20241115
  2. LETROZOLE [Concomitant]
     Active Substance: LETROZOLE
     Indication: Product used for unknown indication
     Dosage: UNK UNK, UNKNOWN
     Route: 065
     Dates: start: 2024

REACTIONS (14)
  - Immunodeficiency [Recovering/Resolving]
  - Diarrhoea haemorrhagic [Recovering/Resolving]
  - Platelet count decreased [Recovering/Resolving]
  - Feeling abnormal [Recovering/Resolving]
  - Head discomfort [Recovering/Resolving]
  - Abdominal pain [Recovering/Resolving]
  - Dysstasia [Recovering/Resolving]
  - Gait disturbance [Recovering/Resolving]
  - Dehydration [Recovering/Resolving]
  - Haematotoxicity [Unknown]
  - Haemorrhoids [Unknown]
  - Anorectal discomfort [Unknown]
  - Fatigue [Recovering/Resolving]
  - Asthenia [Recovering/Resolving]

NARRATIVE: CASE EVENT DATE: 20240101
